FAERS Safety Report 6935086-3 (Version None)
Quarter: 2010Q3

REPORT INFORMATION
  Report Type: 
  Country: None (occurrence: None)
  Receive Date: 20100822
  Receipt Date: 20100812
  Transmission Date: 20110219
  Serious: Yes (Death, Hospitalization)
  Sender: FDA-Public Use
  Company Number: PHHY2010CR53026

PATIENT
  Sex: Female

DRUGS (4)
  1. DIOVAN [Suspect]
     Indication: CARDIOMYOPATHY
     Dosage: 160 MG PER DAY
     Route: 048
     Dates: start: 20091101
  2. PLAVIX [Concomitant]
  3. WARFARIN [Concomitant]
  4. VASTAREL ^BIOPHARMA^ [Concomitant]

REACTIONS (2)
  - DIVERTICULUM INTESTINAL HAEMORRHAGIC [None]
  - GASTROINTESTINAL HAEMORRHAGE [None]
